FAERS Safety Report 6386993-4 (Version None)
Quarter: 2009Q4

REPORT INFORMATION
  Report Type: 
  Country: None (occurrence: None)
  Receive Date: 20091002
  Receipt Date: 20090925
  Transmission Date: 20100525
  Serious: Yes (Other)
  Sender: FDA-Public Use
  Company Number: FR-ASTRAZENECA-2009SE09169

PATIENT
  Age: 8326 Day
  Sex: Male
  Weight: 80 kg

DRUGS (3)
  1. SYMBICORT TURBUHALER 400 [Suspect]
     Indication: ASTHMA
     Dosage: 320/9 UG, ONE INHALATION TWICE DAILY
     Route: 055
     Dates: start: 20081201, end: 20090601
  2. SYMBICORT TURBUHALER 400 [Suspect]
     Dosage: 320/9 UG, ONE INHALATION DAILY
     Route: 055
     Dates: start: 20090601, end: 20090706
  3. SYMBICORT TURBUHALER 400 [Suspect]
     Dosage: 320/9 UG, ONE INHALATION TWICE DAILY
     Route: 055
     Dates: start: 20090706

REACTIONS (2)
  - ASTHMA [None]
  - PRODUCT CONTAINER ISSUE [None]
